FAERS Safety Report 22064682 (Version 1)
Quarter: 2023Q1

REPORT INFORMATION
  Report Type: Spontaneous
  Country: CN (occurrence: CN)
  Receive Date: 20230306
  Receipt Date: 20230306
  Transmission Date: 20230418
  Serious: Yes (Other)
  Sender: FDA-Public Use
  Company Number: CN-BAYER-2023A027957

PATIENT
  Age: 69 Year
  Sex: Female

DRUGS (8)
  1. RIVAROXABAN [Interacting]
     Active Substance: RIVAROXABAN
     Indication: Pulmonary embolism
     Dosage: UNK
     Route: 048
     Dates: start: 202105, end: 202105
  2. ASPIRIN [Suspect]
     Active Substance: ASPIRIN
     Indication: Antiplatelet therapy
     Dosage: UNK
     Route: 065
     Dates: start: 202105
  3. ALTEPLASE [Interacting]
     Active Substance: ALTEPLASE
     Indication: Thrombolysis
     Dosage: 50 MG/50ML
     Dates: start: 202105
  4. ENOXAPARIN [Concomitant]
     Active Substance: ENOXAPARIN
     Indication: Myocardial ischaemia
     Dosage: 0.55 ML, BID
     Dates: start: 20210508
  5. NIFEDIPINE [Concomitant]
     Active Substance: NIFEDIPINE
     Dosage: 20 MG, QD
     Route: 048
  6. CITICOLINE SODIUM [Concomitant]
     Active Substance: CITICOLINE SODIUM
     Dosage: UNK
     Dates: start: 202105
  7. SHU XUE TONG [Concomitant]
     Indication: Angiopathy
     Dosage: UNK
     Dates: start: 202105
  8. KALLIDINOGENASE [Concomitant]
     Active Substance: KALLIDINOGENASE
     Indication: Collateral circulation
     Dosage: UNK
     Dates: start: 202105

REACTIONS (2)
  - Cerebral haemorrhage [Recovering/Resolving]
  - Labelled drug-drug interaction medication error [Unknown]

NARRATIVE: CASE EVENT DATE: 20210523
